FAERS Safety Report 4532301-0 (Version None)
Quarter: 2004Q4

REPORT INFORMATION
  Report Type: 
  Country: None (occurrence: None)
  Receive Date: 20041206
  Receipt Date: 20041015
  Transmission Date: 20050328
  Serious: No
  Sender: FDA-Public Use
  Company Number: US_0410107155

PATIENT
  Sex: Female

DRUGS (3)
  1. CYMBALTA [Suspect]
     Indication: DEPRESSION
     Dates: start: 20041012
  2. FLUOXETINE [Suspect]
  3. SERTRALINE HCL [Concomitant]

REACTIONS (3)
  - HYPERCHLORHYDRIA [None]
  - TINNITUS [None]
  - TREMOR [None]
